FAERS Safety Report 18559351 (Version 2)
Quarter: 2020Q4

REPORT INFORMATION
  Report Type: Report from Study
  Country: FR (occurrence: FR)
  Receive Date: 20201130
  Receipt Date: 20201210
  Transmission Date: 20210114
  Serious: Yes (Life-Threatening, Hospitalization)
  Sender: FDA-Public Use
  Company Number: FR-ROCHE-2665887

PATIENT
  Age: 69 Year
  Sex: Female

DRUGS (11)
  1. TCAPS [Concomitant]
  2. MOVENTIG [Concomitant]
     Active Substance: NALOXEGOL OXALATE
  3. XANAX [Concomitant]
     Active Substance: ALPRAZOLAM
  4. CISPLATIN. [Suspect]
     Active Substance: CISPLATIN
     Indication: ANAL SQUAMOUS CELL CARCINOMA
     Dosage: DATE OF LAST DOSE 66 MG OF CISPLATIN ADMINISTERED PRIOR TO ONSET OF SERIOUS ADVERSE EVENT ON 12/AUG/
     Route: 065
     Dates: start: 20200812
  5. INNOHEP [Concomitant]
     Active Substance: TINZAPARIN SODIUM
  6. 5-FLUOROURACIL [Suspect]
     Active Substance: FLUOROURACIL
     Indication: ANAL SQUAMOUS CELL CARCINOMA
     Dosage: DATE OF LAST DOSE 4000 MG OF 5-FLUOROURACIL ADMINISTERED PRIOR TO ONSET OF SERIOUS ADVERSE EVENT ON
     Route: 065
     Dates: start: 20200812
  7. OXYCODONE [Concomitant]
     Active Substance: OXYCODONE
  8. OXYNORMORO [Concomitant]
     Active Substance: OXYCODONE HYDROCHLORIDE
  9. DOCETAXEL. [Suspect]
     Active Substance: DOCETAXEL
     Indication: ANAL SQUAMOUS CELL CARCINOMA
     Dosage: DATE OF LAST DOSE 68 MG OF DOCETAXEL ADMINISTERED PRIOR TO ONSET OF SERIOUS ADVERSE EVENT ON 11/AUG/
     Route: 065
     Dates: start: 20200811
  10. PANTOPRAZOLE [Concomitant]
     Active Substance: PANTOPRAZOLE
  11. ATEZOLIZUMAB. [Suspect]
     Active Substance: ATEZOLIZUMAB
     Indication: ANAL SQUAMOUS CELL CARCINOMA
     Route: 042

REACTIONS (4)
  - Faecaloma [Not Recovered/Not Resolved]
  - Haematoma [Not Recovered/Not Resolved]
  - Sepsis [Not Recovered/Not Resolved]
  - General physical health deterioration [Recovered/Resolved]

NARRATIVE: CASE EVENT DATE: 20200813
